FAERS Safety Report 16296994 (Version 1)
Quarter: 2019Q2

REPORT INFORMATION
  Report Type: Spontaneous
  Country: US (occurrence: US)
  Receive Date: 20190509
  Receipt Date: 20190509
  Transmission Date: 20190711
  Serious: Yes (Other)
  Sender: FDA-Public Use
  Company Number: None

PATIENT
  Age: 58 Year
  Sex: Male
  Weight: 67.5 kg

DRUGS (1)
  1. ACETAMINOPHEN. [Suspect]
     Active Substance: ACETAMINOPHEN
     Indication: PAIN
     Dosage: ?          OTHER FREQUENCY:EVERY 3-4 HOURS;?
     Route: 048
     Dates: start: 20190323, end: 20190416

REACTIONS (2)
  - Headache [None]
  - Rash erythematous [None]

NARRATIVE: CASE EVENT DATE: 20190416
